FAERS Safety Report 5622168-1 (Version None)
Quarter: 2008Q1

REPORT INFORMATION
  Report Type: 
  Country: None (occurrence: None)
  Receive Date: 20080206
  Receipt Date: 20080129
  Transmission Date: 20080703
  Serious: Yes (Death)
  Sender: FDA-Public Use
  Company Number: 18274

PATIENT
  Age: 15 Year
  Sex: Female

DRUGS (6)
  1. VINCRISTINE [Suspect]
     Indication: ASTROCYTOMA, LOW GRADE
  2. ETOPOSIDE [Suspect]
     Indication: ASTROCYTOMA, LOW GRADE
  3. CISPLATIN [Suspect]
     Indication: ASTROCYTOMA, LOW GRADE
  4. IFOSFAMIDE [Suspect]
     Indication: ASTROCYTOMA, LOW GRADE
  5. VALPROIC ACID [Suspect]
     Indication: ASTROCYTOMA, LOW GRADE
  6. RADIATION [Concomitant]

REACTIONS (5)
  - ASTROCYTOMA, LOW GRADE [None]
  - GENE MUTATION IDENTIFICATION TEST POSITIVE [None]
  - METASTASES TO MENINGES [None]
  - NEOPLASM PROGRESSION [None]
  - PRIMITIVE NEUROECTODERMAL TUMOUR [None]
